FAERS Safety Report 9898037 (Version 7)
Quarter: 2015Q3

REPORT INFORMATION
  Report Type: Report from Study
  Country: US (occurrence: US)
  Receive Date: 20140214
  Receipt Date: 20150810
  Transmission Date: 20151125
  Serious: Yes (Other)
  Sender: FDA-Public Use
  Company Number: US-SA-2013SA112535

PATIENT
  Age: 55 Year
  Sex: Female

DRUGS (4)
  1. AUBAGIO [Suspect]
     Active Substance: TERIFLUNOMIDE
     Indication: MULTIPLE SCLEROSIS
     Route: 048
     Dates: end: 20150731
  2. AUBAGIO [Suspect]
     Active Substance: TERIFLUNOMIDE
     Indication: MULTIPLE SCLEROSIS
     Route: 048
     Dates: start: 20131017
  3. AUBAGIO [Suspect]
     Active Substance: TERIFLUNOMIDE
     Indication: MULTIPLE SCLEROSIS
     Route: 048
     Dates: start: 20131207, end: 201401
  4. POTASSIUM [Concomitant]
     Active Substance: POTASSIUM

REACTIONS (21)
  - Stress [Unknown]
  - Contusion [Not Recovered/Not Resolved]
  - Contusion [Unknown]
  - Asthma [Unknown]
  - Thyroid hormones increased [Unknown]
  - Malaise [Unknown]
  - Fall [Not Recovered/Not Resolved]
  - Back pain [Not Recovered/Not Resolved]
  - Multiple sclerosis relapse [Unknown]
  - Muscular weakness [Unknown]
  - Dyskinesia [Unknown]
  - Cough [Unknown]
  - Drug dose omission [Unknown]
  - Loss of consciousness [Unknown]
  - Respiratory disorder [Unknown]
  - Blood pressure increased [Recovering/Resolving]
  - Fall [Unknown]
  - Diarrhoea [Not Recovered/Not Resolved]
  - Influenza [Unknown]
  - Fatigue [Unknown]
  - Blood potassium abnormal [Unknown]

NARRATIVE: CASE EVENT DATE: 201310
